FAERS Safety Report 15394354 (Version 2)
Quarter: 2018Q3

REPORT INFORMATION
  Report Type: Spontaneous
  Country: TR (occurrence: TR)
  Receive Date: 20180918
  Receipt Date: 20180925
  Transmission Date: 20181010
  Serious: Yes (Other)
  Sender: FDA-Public Use
  Company Number: TR-ROCHE-2185529

PATIENT
  Age: 78 Year
  Sex: Female
  Weight: 70 kg

DRUGS (1)
  1. LUCENTIS [Suspect]
     Active Substance: RANIBIZUMAB
     Indication: AGE-RELATED MACULAR DEGENERATION
     Dosage: 1 DF, QMO
     Route: 031
     Dates: start: 20180522

REACTIONS (1)
  - Retinal artery occlusion [Unknown]

NARRATIVE: CASE EVENT DATE: 20180903
